FAERS Safety Report 13467396 (Version 1)
Quarter: 2017Q2

REPORT INFORMATION
  Report Type: Spontaneous
  Country: US (occurrence: US)
  Receive Date: 20170421
  Receipt Date: 20170421
  Transmission Date: 20170830
  Serious: Yes (Hospitalization)
  Sender: FDA-Public Use
  Company Number: None

PATIENT
  Age: 29 Year
  Sex: Female
  Weight: 73.21 kg

DRUGS (1)
  1. LAMOTRIGENE [Suspect]
     Active Substance: LAMOTRIGINE
     Indication: BIPOLAR DISORDER
     Route: 048
     Dates: start: 20161104, end: 20170330

REACTIONS (2)
  - Chest pain [None]
  - Blood potassium decreased [None]

NARRATIVE: CASE EVENT DATE: 20170330
